FAERS Safety Report 7580611-5 (Version None)
Quarter: 2011Q2

REPORT INFORMATION
  Report Type: 
  Country: None (occurrence: None)
  Receive Date: 20110629
  Receipt Date: 20110621
  Transmission Date: 20111010
  Serious: Yes (Hospitalization)
  Sender: FDA-Public Use
  Company Number: B0729324A

PATIENT

DRUGS (2)
  1. LAPATINIB [Suspect]
     Route: 065
     Dates: start: 20090710, end: 20091105
  2. CAPECITABINE [Concomitant]
     Dates: start: 20090710, end: 20091105

REACTIONS (2)
  - TRANSAMINASES INCREASED [None]
  - JAUNDICE [None]
